FAERS Safety Report 8986482 (Version 25)
Quarter: 2016Q3

REPORT INFORMATION
  Report Type: Report from Study
  Country: US (occurrence: US)
  Receive Date: 20121226
  Receipt Date: 20160926
  Transmission Date: 20161109
  Serious: Yes (Hospitalization)
  Sender: FDA-Public Use
  Company Number: US-ROCHE-1170815

PATIENT
  Age: 61 Year
  Sex: Male
  Weight: 97.3 kg

DRUGS (17)
  1. IPRATROPIUM BROMIDE. [Concomitant]
     Active Substance: IPRATROPIUM BROMIDE
     Route: 065
     Dates: start: 20130109, end: 20130110
  2. VALTREX [Concomitant]
     Active Substance: VALACYCLOVIR HYDROCHLORIDE
     Route: 065
     Dates: start: 20121217, end: 20121222
  3. COREG [Concomitant]
     Active Substance: CARVEDILOL
     Route: 065
     Dates: start: 20130108
  4. VEMURAFENIB [Suspect]
     Active Substance: VEMURAFENIB
     Indication: NON-SMALL CELL LUNG CANCER
     Dosage: DATE OF LAST DOSE PRIOR TO SAE: 13/DEC/2012, 20/DEC/2012.
     Route: 048
     Dates: start: 20121115, end: 20121213
  5. LISINOPRIL. [Concomitant]
     Active Substance: LISINOPRIL
     Route: 065
     Dates: start: 20120816, end: 20121213
  6. VEMURAFENIB [Suspect]
     Active Substance: VEMURAFENIB
     Dosage: DATE OF LAST DOSE PRIOR TO SAE : 29/DEC/2012 (WORSENING DYSPNEA), 21/DEC/2012 (ACUTE RENAL FAILURE),
     Route: 048
     Dates: start: 20121221, end: 20130108
  7. LEVOFLOXACIN. [Concomitant]
     Active Substance: LEVOFLOXACIN
     Route: 065
     Dates: start: 20130110, end: 20130120
  8. LEVALBUTEROL. [Concomitant]
     Active Substance: LEVALBUTEROL
     Route: 065
     Dates: start: 20130109
  9. IMITREX [Concomitant]
     Active Substance: SUMATRIPTAN SUCCINATE
     Route: 065
     Dates: start: 20120813
  10. LASIX [Concomitant]
     Active Substance: FUROSEMIDE
     Route: 065
     Dates: start: 201208, end: 20121121
  11. COREG [Concomitant]
     Active Substance: CARVEDILOL
     Route: 065
     Dates: start: 201208, end: 20121214
  12. SUMATRIPTAN. [Concomitant]
     Active Substance: SUMATRIPTAN
     Route: 065
     Dates: start: 1997
  13. IMODIUM [Concomitant]
     Active Substance: LOPERAMIDE HYDROCHLORIDE
     Route: 065
     Dates: start: 20121213, end: 20121218
  14. LASIX [Concomitant]
     Active Substance: FUROSEMIDE
     Route: 065
     Dates: start: 20120817
  15. COREG [Concomitant]
     Active Substance: CARVEDILOL
     Route: 065
     Dates: start: 20120907, end: 2014
  16. LEVOFLOXACIN. [Concomitant]
     Active Substance: LEVOFLOXACIN
     Dosage: 2 TAB
     Route: 065
     Dates: start: 20130112, end: 20130121
  17. IMODIUM [Concomitant]
     Active Substance: LOPERAMIDE HYDROCHLORIDE
     Route: 065
     Dates: start: 20121213, end: 20121218

REACTIONS (4)
  - Stomatitis [Recovered/Resolved]
  - Dyspnoea [Recovered/Resolved]
  - Renal failure [Recovered/Resolved]
  - Acute kidney injury [Recovered/Resolved]

NARRATIVE: CASE EVENT DATE: 20121121
